FAERS Safety Report 11475154 (Version 2)
Quarter: 2015Q3

REPORT INFORMATION
  Report Type: Spontaneous
  Country: HU (occurrence: HU)
  Receive Date: 20150908
  Receipt Date: 20150921
  Transmission Date: 20151125
  Serious: Yes (Other)
  Sender: FDA-Public Use
  Company Number: HU-ROCHE-1631236

PATIENT
  Age: 53 Year
  Sex: Female

DRUGS (2)
  1. COPEGUS [Suspect]
     Active Substance: RIBAVIRIN
     Indication: HEPATITIS C
     Route: 065
     Dates: start: 20150304, end: 20150805
  2. PEGASYS [Suspect]
     Active Substance: PEGINTERFERON ALFA-2A
     Indication: HEPATITIS C
     Route: 065
     Dates: start: 20150304, end: 20150805

REACTIONS (4)
  - Pyrexia [Recovered/Resolved]
  - Blood lactate dehydrogenase increased [Unknown]
  - Rash [Recovered/Resolved]
  - Lymphadenopathy [Recovering/Resolving]
